FAERS Safety Report 6971111-1 (Version None)
Quarter: 2010Q3

REPORT INFORMATION
  Report Type: 
  Country: None (occurrence: None)
  Receive Date: 20100908
  Receipt Date: 20100831
  Transmission Date: 20110219
  Serious: Yes (Other)
  Sender: FDA-Public Use
  Company Number: US-PFIZER INC-2010110465

PATIENT
  Sex: Female
  Weight: 63.492 kg

DRUGS (1)
  1. TOVIAZ [Suspect]
     Indication: HYPERTONIC BLADDER
     Dosage: UNK
     Route: 048
     Dates: start: 20100601, end: 20100601

REACTIONS (2)
  - HYPERSENSITIVITY [None]
  - OEDEMA PERIPHERAL [None]
